FAERS Safety Report 17774952 (Version 1)
Quarter: 2020Q2

REPORT INFORMATION
  Report Type: Spontaneous
  Country: US (occurrence: US)
  Receive Date: 20200512
  Receipt Date: 20200512
  Transmission Date: 20200714
  Serious: Yes (Other)
  Sender: FDA-Public Use
  Company Number: None

PATIENT
  Age: 53 Year
  Sex: Female
  Weight: 67.5 kg

DRUGS (1)
  1. MINOXIDIL WITH BIOTIN [Suspect]
     Active Substance: BIOTIN\MINOXIDIL

REACTIONS (2)
  - Tachycardia [None]
  - Arrhythmia [None]

NARRATIVE: CASE EVENT DATE: 20200508
